FAERS Safety Report 9602082 (Version 2)
Quarter: 2016Q4

REPORT INFORMATION
  Report Type: Spontaneous
  Country: US (occurrence: US)
  Receive Date: 20131007
  Receipt Date: 20161123
  Transmission Date: 20170207
  Serious: Yes (Other)
  Sender: FDA-Public Use
  Company Number: US-009507513-1309USA013149

PATIENT
  Age: 65 Year
  Sex: Male
  Weight: 71.66 kg

DRUGS (19)
  1. FLOMAX [Concomitant]
     Active Substance: TAMSULOSIN HYDROCHLORIDE
  2. SUTENT [Concomitant]
     Active Substance: SUNITINIB MALATE
     Dosage: UNK
     Dates: start: 201212
  3. ATROPINE. [Concomitant]
     Active Substance: ATROPINE
  4. OXYGEN. [Concomitant]
     Active Substance: OXYGEN
  5. ZOFRAN [Concomitant]
     Active Substance: ONDANSETRON HYDROCHLORIDE
  6. HYDROMORPHONE HYDROCHLORIDE. [Concomitant]
     Active Substance: HYDROMORPHONE HYDROCHLORIDE
  7. LANSOPRAZOLE. [Concomitant]
     Active Substance: LANSOPRAZOLE
  8. DECADRON [Suspect]
     Active Substance: DEXAMETHASONE
     Indication: PRODUCT USED FOR UNKNOWN INDICATION
     Dosage: 8 MG PER DAY
  9. POTASSIUM CITRATE. [Concomitant]
     Active Substance: POTASSIUM CITRATE
  10. VOTRIENT [Suspect]
     Active Substance: PAZOPANIB HYDROCHLORIDE
     Indication: RENAL CELL CARCINOMA
     Dosage: 800 MG, QD
     Route: 048
     Dates: start: 20130425
  11. VITAMIN D [Concomitant]
     Active Substance: CHOLECALCIFEROL
  12. AMLODIPINE BESYLATE. [Concomitant]
     Active Substance: AMLODIPINE BESYLATE
  13. ASPIRIN. [Concomitant]
     Active Substance: ASPIRIN
  14. TYLENOL [Concomitant]
     Active Substance: ACETAMINOPHEN
  15. ALBUTEROL SULFATE. [Concomitant]
     Active Substance: ALBUTEROL SULFATE
  16. CEPHALEXIN. [Concomitant]
     Active Substance: CEPHALEXIN
  17. VENLAFAXINE HYDROCHLORIDE. [Concomitant]
     Active Substance: VENLAFAXINE HYDROCHLORIDE
  18. DEXAMETHASONE. [Concomitant]
     Active Substance: DEXAMETHASONE
  19. LORAZEPAM. [Concomitant]
     Active Substance: LORAZEPAM

REACTIONS (45)
  - Neuropathy peripheral [Unknown]
  - Transient ischaemic attack [Unknown]
  - Dysphonia [Not Recovered/Not Resolved]
  - Joint swelling [Not Recovered/Not Resolved]
  - Balance disorder [Unknown]
  - Peripheral swelling [Not Recovered/Not Resolved]
  - Weight decreased [Unknown]
  - Hypersomnia [Unknown]
  - Oral pain [Unknown]
  - Gait disturbance [Unknown]
  - Hypoaesthesia [Unknown]
  - Productive cough [Not Recovered/Not Resolved]
  - Hypoaesthesia oral [Unknown]
  - Drug intolerance [Unknown]
  - Peroneal nerve palsy [Recovering/Resolving]
  - Fall [Unknown]
  - Swelling face [Unknown]
  - Hypoaesthesia [Unknown]
  - Muscular weakness [Unknown]
  - Vertigo [Unknown]
  - Vision blurred [Unknown]
  - Decreased appetite [Unknown]
  - Stomatitis [Unknown]
  - Hypoaesthesia [Unknown]
  - Alanine aminotransferase increased [Unknown]
  - Dysgeusia [Not Recovered/Not Resolved]
  - Skin abrasion [Unknown]
  - Pallor [Unknown]
  - Diarrhoea [Unknown]
  - Coordination abnormal [Unknown]
  - Aspartate aminotransferase increased [Unknown]
  - Diarrhoea [Not Recovered/Not Resolved]
  - Fatigue [Unknown]
  - Laceration [Unknown]
  - Asthenia [Unknown]
  - Oedema peripheral [Unknown]
  - Fall [Unknown]
  - Upper-airway cough syndrome [Not Recovered/Not Resolved]
  - Tongue disorder [Not Recovered/Not Resolved]
  - Blood creatinine increased [Not Recovered/Not Resolved]
  - Nausea [Recovered/Resolved]
  - Blood pressure increased [Recovering/Resolving]
  - Headache [Unknown]
  - Protein total decreased [Unknown]
  - Dizziness [Unknown]

NARRATIVE: CASE EVENT DATE: 2013
